FAERS Safety Report 7114600-1 (Version None)
Quarter: 2010Q4

REPORT INFORMATION
  Report Type: 
  Country: None (occurrence: None)
  Receive Date: 20101121
  Receipt Date: 20101108
  Transmission Date: 20110411
  Serious: Yes (Life-Threatening)
  Sender: FDA-Public Use
  Company Number: GB-MYLANLABS-2010S1020516

PATIENT
  Age: 83 Year
  Sex: Female

DRUGS (6)
  1. NAPROXEN [Suspect]
     Indication: MUSCULOSKELETAL CHEST PAIN
     Route: 048
     Dates: start: 20101020, end: 20101023
  2. NAPROXEN [Suspect]
     Indication: MESOTHELIOMA
     Route: 048
     Dates: start: 20101020, end: 20101023
  3. LANSOPRAZOLE [Concomitant]
     Indication: PRODUCT USED FOR UNKNOWN INDICATION
  4. MORPHINE SULFATE [Concomitant]
     Indication: PRODUCT USED FOR UNKNOWN INDICATION
     Dates: start: 20101020
  5. OXYCONTIN [Concomitant]
     Indication: PRODUCT USED FOR UNKNOWN INDICATION
     Dates: end: 20101020
  6. PREGABALIN [Concomitant]
     Indication: PRODUCT USED FOR UNKNOWN INDICATION
     Dosage: INCREASED FROM 50 MG
     Dates: start: 20101020

REACTIONS (3)
  - HEPATIC FUNCTION ABNORMAL [None]
  - NARCOTIC INTOXICATION [None]
  - RENAL FAILURE ACUTE [None]
